FAERS Safety Report 4738162-9 (Version None)
Quarter: 2005Q3

REPORT INFORMATION
  Report Type: 
  Country: None (occurrence: None)
  Receive Date: 20050809
  Receipt Date: 20050502
  Transmission Date: 20060218
  Serious: Yes (Life-Threatening)
  Sender: FDA-Public Use
  Company Number: US-ROCHE-403753

PATIENT
  Sex: Female

DRUGS (2)
  1. ROCEPHIN [Suspect]
     Route: 030
  2. ROCEPHIN [Suspect]
     Dosage: INDICATION: CELLULITIS.
     Route: 030
     Dates: start: 20010615

REACTIONS (1)
  - ANAPHYLACTIC REACTION [None]
